FAERS Safety Report 16900489 (Version 2)
Quarter: 2019Q4

REPORT INFORMATION
  Report Type: Spontaneous
  Country: US (occurrence: US)
  Receive Date: 20191009
  Receipt Date: 20191023
  Transmission Date: 20200122
  Serious: Yes (Other)
  Sender: FDA-Public Use
  Company Number: US-009507513-1910USA006786

PATIENT
  Age: 60 Year
  Sex: Male

DRUGS (1)
  1. TICE BCG [Suspect]
     Active Substance: BACILLUS CALMETTE-GUERIN SUBSTRAIN TICE LIVE ANTIGEN
     Indication: BLADDER CANCER
     Dosage: UNK
     Route: 043

REACTIONS (6)
  - Dysuria [Unknown]
  - Cystitis noninfective [Unknown]
  - Prostatitis [Unknown]
  - Nocturia [Unknown]
  - Prostatic specific antigen increased [Unknown]
  - Haematuria [Unknown]
